FAERS Safety Report 5825727-6 (Version None)
Quarter: 2008Q3

REPORT INFORMATION
  Report Type: 
  Country: None (occurrence: None)
  Receive Date: 20080728
  Receipt Date: 20080728
  Transmission Date: 20090109
  Serious: No
  Sender: FDA-Public Use
  Company Number: None

PATIENT
  Age: 41 Year
  Sex: Male
  Weight: 113.3993 kg

DRUGS (1)
  1. CIPRO [Suspect]
     Indication: URINARY TRACT INFECTION
     Dosage: 500 MG 2X DAY PO
     Route: 048
     Dates: start: 20080603, end: 20080617

REACTIONS (6)
  - ARTHRALGIA [None]
  - GASTRIC DISORDER [None]
  - INSOMNIA [None]
  - MUSCLE TWITCHING [None]
  - MYOCLONUS [None]
  - TREMOR [None]
